FAERS Safety Report 7584089-7 (Version None)
Quarter: 2011Q2

REPORT INFORMATION
  Report Type: 
  Country: None (occurrence: None)
  Receive Date: 20110630
  Receipt Date: 20110624
  Transmission Date: 20111010
  Serious: Yes (Life-Threatening, Hospitalization, Disabling)
  Sender: FDA-Public Use
  Company Number: US-MERCK-1106USA01600

PATIENT
  Age: 79 Year
  Sex: Male

DRUGS (4)
  1. SINEMET [Suspect]
     Route: 048
  2. SINEMET [Suspect]
     Indication: PARKINSON'S DISEASE
     Dosage: FOUR TIMES PER DAY
     Route: 048
     Dates: start: 20101201
  3. CELEXA [Concomitant]
     Route: 065
  4. PROTONIX [Concomitant]
     Route: 065

REACTIONS (2)
  - OVERDOSE [None]
  - RHABDOMYOLYSIS [None]
